FAERS Safety Report 9889195 (Version 1)
Quarter: 2014Q1

REPORT INFORMATION
  Report Type: Spontaneous
  Country: JP (occurrence: JP)
  Receive Date: 20140211
  Receipt Date: 20140211
  Transmission Date: 20141002
  Serious: Yes (Other)
  Sender: FDA-Public Use
  Company Number: JP-BRISTOL-MYERS SQUIBB COMPANY-20142972

PATIENT
  Age: 78 Year
  Sex: Male

DRUGS (1)
  1. METGLUCO [Suspect]
     Indication: DIABETES MELLITUS
     Dosage: DOSE INCREASED TO 1500MG
     Route: 048

REACTIONS (1)
  - Blood uric acid increased [Unknown]
